FAERS Safety Report 8284775-X (Version None)
Quarter: 2012Q2

REPORT INFORMATION
  Report Type: 
  Country: None (occurrence: None)
  Receive Date: 20120413
  Receipt Date: 20110713
  Transmission Date: 20120825
  Serious: No
  Sender: FDA-Public Use
  Company Number: US-ASTRAZENECA-2011SE42285

PATIENT
  Sex: Female
  Weight: 82.1 kg

DRUGS (4)
  1. NEXIUM [Suspect]
     Route: 048
  2. ZANTAC [Concomitant]
  3. CALCIUM CARBONATE [Concomitant]
  4. PRILOSEC OTC [Suspect]
     Route: 048

REACTIONS (7)
  - BONE DISORDER [None]
  - ARTHRALGIA [None]
  - HYPERTENSION [None]
  - HYPOTHYROIDISM [None]
  - DRUG DOSE OMISSION [None]
  - DYSPEPSIA [None]
  - DRUG INEFFECTIVE [None]
